FAERS Safety Report 12486880 (Version 3)
Quarter: 2016Q3

REPORT INFORMATION
  Report Type: Spontaneous
  Country: None (occurrence: GB)
  Receive Date: 20160621
  Receipt Date: 20160801
  Transmission Date: 20161109
  Serious: Yes (Other)
  Sender: FDA-Public Use
  Company Number: GB-ALLERGAN-1660619US

PATIENT
  Sex: Female

DRUGS (2)
  1. DECAPEPTYL SR 22.5MG [Suspect]
     Active Substance: TRIPTORELIN PAMOATE
     Indication: PRODUCT USED FOR UNKNOWN INDICATION
     Dosage: UNK
  2. HERCEPTIN [Suspect]
     Active Substance: TRASTUZUMAB
     Indication: PRODUCT USED FOR UNKNOWN INDICATION
     Dosage: 600 MG, UNK
     Route: 058

REACTIONS (15)
  - Diarrhoea [Unknown]
  - Nausea [Unknown]
  - Back pain [Unknown]
  - Asthenia [Recovering/Resolving]
  - Fatigue [Unknown]
  - Breast tenderness [Unknown]
  - Vomiting [Unknown]
  - Headache [Unknown]
  - Pollakiuria [Unknown]
  - Malaise [Unknown]
  - Neuropathy peripheral [Recovering/Resolving]
  - Erythema [Unknown]
  - Pain of skin [Unknown]
  - Insomnia [Unknown]
  - Pain [Unknown]
